FAERS Safety Report 9886971 (Version 2)
Quarter: 2014Q1

REPORT INFORMATION
  Report Type: Spontaneous
  Country: US (occurrence: US)
  Receive Date: 20140211
  Receipt Date: 20140211
  Transmission Date: 20141002
  Serious: No
  Sender: FDA-Public Use
  Company Number: US-009507513-1402USA000319

PATIENT
  Age: 61 Year
  Sex: Male

DRUGS (9)
  1. REBETOL [Suspect]
     Indication: HEPATITIS C
     Dosage: 1200 MG, BID (TWICE A DAY)
     Route: 048
     Dates: start: 20140116
  2. PEGINTRON [Suspect]
     Indication: HEPATITIS C
     Dosage: DOSE REPORTED AS: 0.5 ML, Q7DAYS, REDIPEN
     Route: 058
     Dates: start: 20140116
  3. COZAAR [Concomitant]
     Dosage: 50 MG, UNK
     Route: 048
  4. BUPROPION HYDROCHLORIDE [Concomitant]
     Dosage: 300 MG, UNK
  5. METOPROLOL [Concomitant]
     Dosage: 25 MG, UNK
  6. TRAZODONE HYDROCHLORIDE [Concomitant]
     Dosage: 100 MG, UNK
  7. ROPINIROLE [Concomitant]
     Dosage: 1 MG, UNK
  8. TAMSULOSIN HYDROCHLORIDE [Concomitant]
     Dosage: 4 MG, UNK
  9. TERAZOSIN HYDROCHLORIDE [Concomitant]
     Dosage: 1 MG, UNK

REACTIONS (1)
  - Muscle spasms [Unknown]
